FAERS Safety Report 7556684-2 (Version None)
Quarter: 2011Q2

REPORT INFORMATION
  Report Type: 
  Country: None (occurrence: None)
  Receive Date: 20110620
  Receipt Date: 20110608
  Transmission Date: 20111010
  Serious: Yes (Other)
  Sender: FDA-Public Use
  Company Number: JP-SANOFI-AVENTIS-2011SA009453

PATIENT
  Age: 84 Year
  Sex: Male
  Weight: 80 kg

DRUGS (10)
  1. ZOLPIDEM [Suspect]
     Route: 048
     Dates: start: 20110209, end: 20110209
  2. ACECOL [Concomitant]
     Indication: HYPERTENSION
     Route: 048
     Dates: start: 20030120
  3. ASPIRIN [Concomitant]
     Route: 048
     Dates: start: 20040809
  4. AMLODIPINE BESYLATE [Concomitant]
     Indication: HYPERTENSION
     Route: 048
     Dates: start: 20030120
  5. ALOSITOL [Concomitant]
     Route: 048
     Dates: start: 20030120
  6. CASODEX [Concomitant]
     Indication: PROSTATE CANCER
     Route: 048
     Dates: start: 20080101
  7. ZOLPIDEM [Suspect]
     Indication: INSOMNIA
     Route: 048
     Dates: start: 20110207, end: 20110207
  8. URALYT [Concomitant]
     Route: 048
     Dates: start: 20030120
  9. ATORVASTATIN CALCIUM [Concomitant]
     Route: 048
     Dates: start: 20030120
  10. FAMOTIDINE [Concomitant]
     Indication: GASTRODUODENAL ULCER
     Route: 048
     Dates: start: 20030120

REACTIONS (5)
  - NEPHROGENIC DIABETES INSIPIDUS [None]
  - POLYURIA [None]
  - DECREASED APPETITE [None]
  - POLLAKIURIA [None]
  - PANIC ATTACK [None]
